FAERS Safety Report 24150565 (Version 1)
Quarter: 2024Q3

REPORT INFORMATION
  Report Type: Spontaneous
  Country: US (occurrence: US)
  Receive Date: 20240730
  Receipt Date: 20240730
  Transmission Date: 20241016
  Serious: No
  Sender: ELI LILLY AND CO
  Company Number: US-ELI_LILLY_AND_COMPANY-US202407016971

PATIENT
  Age: 59 Year
  Sex: Male

DRUGS (1)
  1. TALTZ [Suspect]
     Active Substance: IXEKIZUMAB
     Indication: Arthritis
     Dosage: 80 MG, UNKNOWN
     Route: 058

REACTIONS (4)
  - Off label use [Unknown]
  - Arthritis [Not Recovered/Not Resolved]
  - Extra dose administered [Unknown]
  - Injection site mass [Unknown]

NARRATIVE: CASE EVENT DATE: 20240717
